FAERS Safety Report 13968481 (Version 1)
Quarter: 2017Q3

REPORT INFORMATION
  Report Type: Spontaneous
  Country: US (occurrence: US)
  Receive Date: 20170914
  Receipt Date: 20170914
  Transmission Date: 20171128
  Serious: Yes (Other)
  Sender: FDA-Public Use
  Company Number: US-SA-2017SA166533

PATIENT
  Age: 72 Year
  Sex: Female
  Weight: 82.5 kg

DRUGS (9)
  1. CYMBALTA [Concomitant]
     Active Substance: DULOXETINE HYDROCHLORIDE
  2. VITAMIN C [Concomitant]
     Active Substance: ASCORBIC ACID
  3. FERROUS SULFATE. [Concomitant]
     Active Substance: FERROUS SULFATE
  4. LORAZEPAM. [Concomitant]
     Active Substance: LORAZEPAM
  5. PLAVIX [Suspect]
     Active Substance: CLOPIDOGREL BISULFATE
     Route: 048
  6. EXFORGE [Concomitant]
     Active Substance: AMLODIPINE BESYLATE\VALSARTAN
  7. REPATHA [Suspect]
     Active Substance: EVOLOCUMAB
     Indication: HYPERLIPIDAEMIA
     Route: 065
  8. REPATHA [Suspect]
     Active Substance: EVOLOCUMAB
     Indication: HYPERLIPIDAEMIA
     Dosage: DOSE:140 MILLIGRAM(S)/MILLILITRE
     Route: 065
     Dates: start: 201601
  9. VITAMIN B12 [Concomitant]
     Active Substance: CYANOCOBALAMIN

REACTIONS (17)
  - Anaemia [Unknown]
  - Electrocardiogram abnormal [Unknown]
  - Hypertension [Unknown]
  - Pedal pulse decreased [Unknown]
  - Rash [Unknown]
  - Type IIa hyperlipidaemia [Unknown]
  - Internal haemorrhage [Unknown]
  - Peripheral vascular disorder [Unknown]
  - Joint stiffness [Unknown]
  - Cardiac murmur [Unknown]
  - Carotid pulse abnormal [Unknown]
  - Popliteal pulse decreased [Unknown]
  - Haemoglobin decreased [Recovering/Resolving]
  - Dry mouth [Unknown]
  - Musculoskeletal stiffness [Unknown]
  - Hemianopia [Unknown]
  - Neck pain [Unknown]

NARRATIVE: CASE EVENT DATE: 20170330
